FAERS Safety Report 9116404 (Version 2)
Quarter: 2013Q1

REPORT INFORMATION
  Report Type: Spontaneous
  Country: US (occurrence: US)
  Receive Date: 20130225
  Receipt Date: 20130311
  Transmission Date: 20140127
  Serious: Yes (Death)
  Sender: FDA-Public Use
  Company Number: US-PFIZER INC-2013068001

PATIENT
  Age: 74 Year
  Sex: Male

DRUGS (1)
  1. MORPHINE SULFATE [Suspect]
     Dosage: 30 MG, UNK
     Route: 048

REACTIONS (7)
  - Completed suicide [Fatal]
  - Drug ineffective [Unknown]
  - Pain [Unknown]
  - Hyperhidrosis [Unknown]
  - Nausea [Unknown]
  - Abnormal dreams [Unknown]
  - Negative thoughts [Unknown]
